FAERS Safety Report 4763220-2 (Version None)
Quarter: 2005Q3

REPORT INFORMATION
  Report Type: 
  Country: None (occurrence: None)
  Receive Date: 20050902
  Receipt Date: 20050829
  Transmission Date: 20060218
  Serious: Yes (Death)
  Sender: FDA-Public Use
  Company Number: ITWYE882203AUG05

PATIENT
  Age: 68 Year
  Sex: Female

DRUGS (7)
  1. EFFEXOR [Suspect]
     Indication: CYCLOTHYMIC DISORDER
     Dates: start: 20000601, end: 20050728
  2. ANAFRANIL [Suspect]
     Indication: CYCLOTHYMIC DISORDER
     Dosage: 0.075 G 1X PER 1 DAY
     Route: 048
     Dates: start: 20000101, end: 20050730
  3. ZYPREXA [Suspect]
     Indication: CYCLOTHYMIC DISORDER
     Dosage: 10 MG 1X PER 1 DAY
     Route: 048
     Dates: start: 20000101, end: 20050721
  4. LEVOPRAID (SULPIRIDE) [Concomitant]
  5. LEXOTAN (BROMAZEPAM) [Concomitant]
  6. GLIBOMET (GLIBENCLAMIDE/METFORMIN HYDROCHLORIDE) [Concomitant]
  7. ANTIHYPERTENSIVES [Concomitant]

REACTIONS (4)
  - BLOOD CREATINE PHOSPHOKINASE INCREASED [None]
  - BLOOD LACTATE DEHYDROGENASE INCREASED [None]
  - HYPERTHERMIA MALIGNANT [None]
  - MYOGLOBIN BLOOD INCREASED [None]
